FAERS Safety Report 4611426-5 (Version None)
Quarter: 2005Q1

REPORT INFORMATION
  Report Type: 
  Country: None (occurrence: None)
  Receive Date: 20050315
  Receipt Date: 20050315
  Transmission Date: 20050727
  Serious: Yes (Hospitalization)
  Sender: FDA-Public Use
  Company Number: None

PATIENT
  Age: 62 Year
  Sex: Male
  Weight: 82.5547 kg

DRUGS (1)
  1. PSUEDOPHED     60MG      UNKNOWN [Suspect]
     Indication: RHINITIS
     Dosage: 60MG     TID     ORAL
     Route: 048
     Dates: start: 20050105, end: 20050110

REACTIONS (2)
  - MEDICATION ERROR [None]
  - TACHYCARDIA [None]
